FAERS Safety Report 7383986-5 (Version None)
Quarter: 2011Q1

REPORT INFORMATION
  Report Type: 
  Country: None (occurrence: None)
  Receive Date: 20110330
  Receipt Date: 20110321
  Transmission Date: 20110831
  Serious: Yes (Hospitalization, Other)
  Sender: FDA-Public Use
  Company Number: US-ASTRAZENECA-2010SE48949

PATIENT
  Age: 56 Year
  Sex: Female

DRUGS (4)
  1. TAGAMENT [Concomitant]
  2. NEXIUM [Suspect]
     Route: 048
  3. PRILOSEC [Suspect]
     Route: 048
  4. PREVACID [Concomitant]

REACTIONS (11)
  - OSTEOPOROSIS [None]
  - ANKLE FRACTURE [None]
  - HIP FRACTURE [None]
  - HIP SURGERY [None]
  - TIBIA FRACTURE [None]
  - OSTEOMYELITIS [None]
  - MONOPARESIS [None]
  - FEMORAL NECK FRACTURE [None]
  - DRUG INEFFECTIVE [None]
  - FALL [None]
  - MASTECTOMY [None]
